FAERS Safety Report 10027731 (Version 1)
Quarter: 2014Q1

REPORT INFORMATION
  Report Type: Spontaneous
  Country: US (occurrence: US)
  Receive Date: 20140321
  Receipt Date: 20140321
  Transmission Date: 20141002
  Serious: No
  Sender: FDA-Public Use
  Company Number: US-MALLINCKRODT-T201304877

PATIENT
  Age: 45 Year
  Sex: Male

DRUGS (2)
  1. METHADOSE [Suspect]
     Indication: DRUG WITHDRAWAL MAINTENANCE THERAPY
     Dosage: 30 MG, QD
     Route: 048
     Dates: start: 201310
  2. METHADONE [Concomitant]
     Indication: DRUG WITHDRAWAL MAINTENANCE THERAPY
     Dosage: 10 MG, TID
     Dates: end: 201310

REACTIONS (2)
  - Dysphonia [Unknown]
  - Dyspnoea [Unknown]
